FAERS Safety Report 6369263-X (Version None)
Quarter: 2009Q3

REPORT INFORMATION
  Report Type: 
  Country: None (occurrence: None)
  Receive Date: 20090916
  Receipt Date: 20090908
  Transmission Date: 20100115
  Serious: Yes (Hospitalization)
  Sender: FDA-Public Use
  Company Number: ADR20232009

PATIENT
  Age: 34 Year
  Sex: Male

DRUGS (4)
  1. CIPROFLAXACIN [Suspect]
     Route: 048
  2. AZITHROMYCIN [Suspect]
     Route: 048
  3. MINOCYCLINE HCL [Suspect]
     Indication: MYCOBACTERIUM ABSCESSUS INFECTION
     Route: 048
  4. MINOCYCLINE HCL [Suspect]
     Indication: PSEUDOMONAS INFECTION
     Route: 048

REACTIONS (9)
  - BODY TEMPERATURE INCREASED [None]
  - CLOSTRIDIUM DIFFICILE COLITIS [None]
  - CULTURE STOOL POSITIVE [None]
  - DEHYDRATION [None]
  - HYPOTENSION [None]
  - NAUSEA [None]
  - PSEUDOMEMBRANOUS COLITIS [None]
  - PYREXIA [None]
  - TACHYCARDIA [None]
